FAERS Safety Report 11575445 (Version 1)
Quarter: 2015Q3

REPORT INFORMATION
  Report Type: Spontaneous
  Country: FR (occurrence: FR)
  Receive Date: 20150930
  Receipt Date: 20150930
  Transmission Date: 20151125
  Serious: Yes (Death)
  Sender: FDA-Public Use
  Company Number: FR-NOVOPROD-465316

PATIENT
  Age: 75 Year
  Sex: Male

DRUGS (24)
  1. NOVOSEVEN [Suspect]
     Active Substance: COAGULATION FACTOR VIIA RECOMBINANT HUMAN
     Indication: OFF LABEL USE
     Dosage: 6 MG, TID
     Route: 042
     Dates: start: 20150731
  2. NOVOSEVEN [Suspect]
     Active Substance: COAGULATION FACTOR VIIA RECOMBINANT HUMAN
     Dosage: 6 MG, QID
     Route: 042
     Dates: start: 20150801, end: 20150802
  3. FEIBA [Suspect]
     Active Substance: ANTI-INHIBITOR COAGULANT COMPLEX
     Dosage: 4000 IU, TID
     Route: 042
     Dates: start: 20150722, end: 20150731
  4. FEIBA [Suspect]
     Active Substance: ANTI-INHIBITOR COAGULANT COMPLEX
     Dosage: 4000 IU, TID
     Route: 042
     Dates: start: 20150806, end: 20150807
  5. NOVOSEVEN [Suspect]
     Active Substance: COAGULATION FACTOR VIIA RECOMBINANT HUMAN
     Indication: POST PROCEDURAL HAEMORRHAGE
     Dosage: 5 MG, TID
     Route: 042
     Dates: start: 20150729, end: 20150730
  6. FEIBA [Suspect]
     Active Substance: ANTI-INHIBITOR COAGULANT COMPLEX
     Dosage: 5000 IU, BID
     Route: 042
     Dates: start: 20150715
  7. FEIBA [Suspect]
     Active Substance: ANTI-INHIBITOR COAGULANT COMPLEX
     Dosage: 5000 IU, BID
     Route: 042
     Dates: start: 20150716
  8. FEIBA [Suspect]
     Active Substance: ANTI-INHIBITOR COAGULANT COMPLEX
     Indication: POST PROCEDURAL HAEMORRHAGE
     Dosage: 5000 IU, BID
     Route: 042
     Dates: start: 20150715
  9. FEIBA [Suspect]
     Active Substance: ANTI-INHIBITOR COAGULANT COMPLEX
     Dosage: 5000 IU, BID
     Route: 042
     Dates: start: 20150716
  10. FEIBA [Suspect]
     Active Substance: ANTI-INHIBITOR COAGULANT COMPLEX
     Dosage: 5000 IU, BID
     Route: 042
     Dates: start: 20150720, end: 20150721
  11. FEIBA [Suspect]
     Active Substance: ANTI-INHIBITOR COAGULANT COMPLEX
     Dosage: 4000 IU, TID
     Route: 042
     Dates: start: 20150804
  12. DAFALGAN [Concomitant]
     Active Substance: ACETAMINOPHEN
     Dosage: UNK
     Route: 065
  13. NOVOSEVEN [Suspect]
     Active Substance: COAGULATION FACTOR VIIA RECOMBINANT HUMAN
     Dosage: 5 MG, TID
     Route: 042
     Dates: start: 20150806, end: 20150807
  14. FEIBA [Suspect]
     Active Substance: ANTI-INHIBITOR COAGULANT COMPLEX
     Dosage: 5000 IU, BID
     Route: 042
     Dates: start: 20150717, end: 20150721
  15. CORTANCYL [Concomitant]
     Active Substance: PREDNISONE
     Indication: FACTOR VIII INHIBITION
     Dosage: 1 DF, QD
     Route: 065
     Dates: start: 20150717
  16. EUPRESSIN [Concomitant]
     Dosage: UNK
     Route: 065
  17. NOVOSEVEN [Suspect]
     Active Substance: COAGULATION FACTOR VIIA RECOMBINANT HUMAN
     Dosage: 6 MG SIX TIMES DAILY
     Route: 042
     Dates: start: 20150803
  18. FEIBA [Suspect]
     Active Substance: ANTI-INHIBITOR COAGULANT COMPLEX
     Dosage: 4000 IU, QD
     Route: 042
     Dates: start: 20150803
  19. NOVOSEVEN [Suspect]
     Active Substance: COAGULATION FACTOR VIIA RECOMBINANT HUMAN
     Dosage: 6 MG, TID
     Route: 042
     Dates: start: 20150731
  20. NOVOSEVEN [Suspect]
     Active Substance: COAGULATION FACTOR VIIA RECOMBINANT HUMAN
     Dosage: 6 MG, QID
     Route: 042
     Dates: start: 20150801, end: 20150802
  21. NOVOSEVEN [Suspect]
     Active Substance: COAGULATION FACTOR VIIA RECOMBINANT HUMAN
     Dosage: 6 MG SIX TIMES DAILY
     Route: 042
     Dates: start: 20150803
  22. FEIBA [Suspect]
     Active Substance: ANTI-INHIBITOR COAGULANT COMPLEX
     Dosage: 5000 IU, BID
     Route: 042
     Dates: start: 20150716
  23. LASILIX                            /00032601/ [Concomitant]
     Active Substance: FUROSEMIDE
     Dosage: UNK
     Route: 065
  24. NOVOSEVEN [Suspect]
     Active Substance: COAGULATION FACTOR VIIA RECOMBINANT HUMAN
     Dosage: 5 MG, TID
     Route: 042
     Dates: start: 20150804

REACTIONS (3)
  - Off label use [Unknown]
  - Drug ineffective [Fatal]
  - Shock haemorrhagic [Fatal]

NARRATIVE: CASE EVENT DATE: 20150716
